FAERS Safety Report 14447947 (Version 1)
Quarter: 2018Q1

REPORT INFORMATION
  Report Type: Spontaneous
  Country: BR (occurrence: BR)
  Receive Date: 20180126
  Receipt Date: 20180126
  Transmission Date: 20180509
  Serious: Yes (Other)
  Sender: FDA-Public Use
  Company Number: BR-SA-2018SA016883

PATIENT
  Age: 40 Year
  Sex: Female
  Weight: 54 kg

DRUGS (5)
  1. OMEGA 3 [Concomitant]
     Active Substance: OMEGA-3 FATTY ACIDS
     Indication: PREGNANCY
     Route: 048
  2. VITAMIN D3 [Concomitant]
     Active Substance: CHOLECALCIFEROL
     Indication: VITAMIN SUPPLEMENTATION
     Route: 048
     Dates: start: 20171212
  3. FOLIC ACID. [Concomitant]
     Active Substance: FOLIC ACID
     Indication: SUPPLEMENTATION THERAPY
     Route: 048
  4. CLEXANE [Suspect]
     Active Substance: ENOXAPARIN SODIUM
     Route: 058
     Dates: start: 20171213, end: 20180101
  5. AAS [Concomitant]
     Active Substance: ASPIRIN
     Indication: HYPERCOAGULATION
     Route: 048
     Dates: start: 20171105, end: 20171228

REACTIONS (5)
  - Injection site haematoma [Not Recovered/Not Resolved]
  - Drug ineffective [Unknown]
  - Abortion [Unknown]
  - Exposure during pregnancy [Unknown]
  - Off label use [Unknown]
